FAERS Safety Report 6389695-3 (Version None)
Quarter: 2009Q4

REPORT INFORMATION
  Report Type: 
  Country: None (occurrence: None)
  Receive Date: 20091002
  Receipt Date: 20091002
  Transmission Date: 20100525
  Serious: Yes (Life-Threatening, Other)
  Sender: FDA-Public Use
  Company Number: None

PATIENT
  Age: 38 Year
  Sex: Female
  Weight: 52.1637 kg

DRUGS (1)
  1. CITRACAL MAXIMUM BAYER [Suspect]
     Dosage: 1 PILL 1 TIME PO 1 TIME
     Route: 048
     Dates: start: 20090929, end: 20090929

REACTIONS (11)
  - BACK PAIN [None]
  - CHILLS [None]
  - DISCOMFORT [None]
  - DIZZINESS [None]
  - DRUG HYPERSENSITIVITY [None]
  - DRY MOUTH [None]
  - HEADACHE [None]
  - HEART RATE INCREASED [None]
  - PRODUCT LABEL ISSUE [None]
  - TREMOR [None]
  - VISION BLURRED [None]
